FAERS Safety Report 7529104-1 (Version None)
Quarter: 2011Q2

REPORT INFORMATION
  Report Type: 
  Country: None (occurrence: None)
  Receive Date: 20110520
  Receipt Date: 20110324
  Transmission Date: 20111010
  Serious: No
  Sender: FDA-Public Use
  Company Number: 030003

PATIENT
  Age: 22 Year
  Sex: Male
  Weight: 154.4 kg

DRUGS (3)
  1. LACOSAMIDE [Suspect]
     Indication: COMPLEX PARTIAL SEIZURES
     Dosage: (100 MG BID ORAL) ; (150 MG BID ORAL)
     Route: 048
     Dates: start: 20110322
  2. LACOSAMIDE [Suspect]
     Indication: COMPLEX PARTIAL SEIZURES
     Dosage: (100 MG BID ORAL) ; (150 MG BID ORAL)
     Route: 048
     Dates: end: 20110321
  3. KEPPRA [Suspect]
     Indication: COMPLEX PARTIAL SEIZURES
     Dosage: (3000 MG ORAL)
     Route: 048

REACTIONS (1)
  - CONVULSION [None]
